FAERS Safety Report 19022480 (Version 2)
Quarter: 2021Q1

REPORT INFORMATION
  Report Type: Spontaneous
  Country: FR (occurrence: FR)
  Receive Date: 20210318
  Receipt Date: 20210329
  Transmission Date: 20210420
  Serious: Yes (Life-Threatening, Hospitalization, Other)
  Sender: FDA-Public Use
  Company Number: FR-AUROBINDO-AUR-APL-2021-010576

PATIENT
  Age: 78 Year
  Sex: Female

DRUGS (4)
  1. TAZOCILLINE [Suspect]
     Active Substance: PIPERACILLIN SODIUM\TAZOBACTAM SODIUM
     Indication: LUNG DISORDER
     Dosage: 16 GRAM PER DAY
     Route: 065
  2. AMIKACIN. [Suspect]
     Active Substance: AMIKACIN
     Indication: LUNG DISORDER
     Dosage: 2 GRAM TOTAL
     Route: 051
  3. LINEZOLID. [Suspect]
     Active Substance: LINEZOLID
     Indication: LUNG DISORDER
     Dosage: 1200 MILLIGRAM, ONCE A DAY
     Route: 065
  4. TAZOCILLINE [Suspect]
     Active Substance: PIPERACILLIN SODIUM\TAZOBACTAM SODIUM
     Dosage: 12 GRAM PER DAY
     Route: 065

REACTIONS (3)
  - Encephalopathy [Recovered/Resolved]
  - Depressed level of consciousness [Recovered/Resolved]
  - Renal impairment [Unknown]
